FAERS Safety Report 14626828 (Version 1)
Quarter: 2018Q1

REPORT INFORMATION
  Report Type: Spontaneous
  Country: US (occurrence: US)
  Receive Date: 20180311
  Receipt Date: 20180311
  Transmission Date: 20180509
  Serious: Yes (Hospitalization)
  Sender: FDA-Public Use
  Company Number: None

PATIENT
  Age: 70 Year
  Sex: Male

DRUGS (1)
  1. NAPROXEN. [Suspect]
     Active Substance: NAPROXEN
     Indication: PAIN
     Dosage: END DATE OF USE GIVEN IS PRIOR TO BEGINNING DATE - OMITTED
     Route: 048
     Dates: start: 20171227

REACTIONS (9)
  - Dyspnoea exertional [None]
  - Duodenal ulcer [None]
  - Anaemia [None]
  - Malaise [None]
  - Fatigue [None]
  - Gastrointestinal haemorrhage [None]
  - Faeces discoloured [None]
  - Faeces hard [None]
  - Rectal haemorrhage [None]

NARRATIVE: CASE EVENT DATE: 20180113
